FAERS Safety Report 4318488-3 (Version None)
Quarter: 2004Q1

REPORT INFORMATION
  Report Type: 
  Country: None (occurrence: None)
  Receive Date: 20040316
  Receipt Date: 20040316
  Transmission Date: 20041129
  Serious: Yes (Other)
  Sender: FDA-Public Use
  Company Number: None

PATIENT
  Age: 41 Year
  Sex: Male

DRUGS (7)
  1. DELAVIRDINE 400MG [Suspect]
     Indication: URTICARIA
     Dosage: 400 MG TID PO
     Route: 048
     Dates: start: 20041117
  2. STAVUDINE [Concomitant]
  3. NEVIRAPINE [Concomitant]
  4. GEMFIBROZIL [Concomitant]
  5. NAPROXEN [Concomitant]
  6. CLOPIDOGREL [Concomitant]
  7. ASPIRIN [Concomitant]

REACTIONS (1)
  - RASH [None]
